FAERS Safety Report 5782069-5 (Version None)
Quarter: 2008Q2

REPORT INFORMATION
  Report Type: 
  Country: None (occurrence: None)
  Receive Date: 20080618
  Receipt Date: 20080610
  Transmission Date: 20081010
  Serious: Yes (Death)
  Sender: FDA-Public Use
  Company Number: CLOF-1000185

PATIENT
  Age: 10 Year
  Sex: Male
  Weight: 43.9 kg

DRUGS (3)
  1. CLOFARABINE (CLOFARABINE) SOLUTION FOR INFUSION [Suspect]
     Indication: ACUTE LYMPHOCYTIC LEUKAEMIA
     Dosage: 70 MG, QDX5, INTRAVENOUS
     Route: 042
     Dates: start: 20080518, end: 20080522
  2. CYTARABINE [Suspect]
     Indication: ACUTE LYMPHOCYTIC LEUKAEMIA
     Dosage: 1300 MG, QDX5, INTRAVENOUS
     Route: 042
     Dates: start: 20080517, end: 20080521
  3. HYDROCORTISONE [Concomitant]

REACTIONS (5)
  - CAPILLARY LEAK SYNDROME [None]
  - HYPOTENSION [None]
  - MULTI-ORGAN FAILURE [None]
  - PULMONARY OEDEMA [None]
  - RENAL FAILURE [None]
